FAERS Safety Report 4849322-0 (Version None)
Quarter: 2005Q4

REPORT INFORMATION
  Report Type: 
  Country: None (occurrence: None)
  Receive Date: 20051207
  Receipt Date: 20051129
  Transmission Date: 20060501
  Serious: Yes (Death)
  Sender: FDA-Public Use
  Company Number: 2005-BP-16239RO

PATIENT
  Age: 53 Year
  Sex: Male
  Weight: 86.2 kg

DRUGS (3)
  1. METHADONE HCL [Suspect]
     Indication: PAIN
     Dosage: 20 MG QPM (10 MG), PO
     Route: 048
     Dates: start: 20050518, end: 20050519
  2. METHADOSE [Suspect]
     Indication: PAIN
     Dosage: 40 MG QAM (40 MG), PO
     Route: 048
     Dates: start: 20050518, end: 20050519
  3. COCAINE (COCAINE) [Suspect]
     Indication: DRUG ABUSER
     Dates: start: 20050518, end: 20050518

REACTIONS (10)
  - ACCIDENT [None]
  - DRUG TOXICITY [None]
  - ERYTHEMA [None]
  - FATIGUE [None]
  - FLUSHING [None]
  - HYPERHIDROSIS [None]
  - PULMONARY OEDEMA [None]
  - SOMNOLENCE [None]
  - VENTRICULAR HYPERTROPHY [None]
  - VOMITING [None]
